FAERS Safety Report 19810305 (Version 1)
Quarter: 2021Q3

REPORT INFORMATION
  Report Type: Spontaneous
  Country: US (occurrence: US)
  Receive Date: 20210909
  Receipt Date: 20210909
  Transmission Date: 20211014
  Serious: Yes (Other)
  Sender: FDA-Public Use
  Company Number: None

PATIENT
  Age: 61 Year
  Weight: 92.53 kg

DRUGS (12)
  1. ATORVASTATIN CALCIUM. [Concomitant]
     Active Substance: ATORVASTATIN CALCIUM
  2. VITAMIN C [Concomitant]
     Active Substance: ASCORBIC ACID
  3. 7  JOINT COMPOUND [Concomitant]
  4. LOW DOSE ASPIRIN [Concomitant]
     Active Substance: ASPIRIN
  5. VIT D [Concomitant]
     Active Substance: VITAMIN D NOS
  6. HYDROCHLOROTHIAZIDE. [Concomitant]
     Active Substance: HYDROCHLOROTHIAZIDE
  7. CALCIUM [Concomitant]
     Active Substance: CALCIUM
  8. METOPROLOL TARTRATE. [Concomitant]
     Active Substance: METOPROLOL TARTRATE
  9. AMLODIPINE BESYLATE. [Concomitant]
     Active Substance: AMLODIPINE BESYLATE
  10. MAGNESIUM [Concomitant]
     Active Substance: MAGNESIUM
  11. ZINC. [Concomitant]
     Active Substance: ZINC
  12. OLMESARTAN MEDOXOMIL 20MG. TAB. / GLEN [Suspect]
     Active Substance: OLMESARTAN MEDOXOMIL
     Indication: HYPERTENSION
     Dosage: 1 TABLET INITIALLY THEN INCREASED TO 2     DURATION: JUST A LITTLE OVER TWO WEEKS
     Route: 048
     Dates: start: 20210730, end: 20210816

REACTIONS (6)
  - Nausea [None]
  - Abdominal discomfort [None]
  - Product odour abnormal [None]
  - Skin odour abnormal [None]
  - Taste disorder [None]
  - Urine odour abnormal [None]
